FAERS Safety Report 21780280 (Version 9)
Quarter: 2025Q4

REPORT INFORMATION
  Report Type: Spontaneous
  Country: EU (occurrence: EU)
  Receive Date: 20221227
  Receipt Date: 20251028
  Transmission Date: 20260118
  Serious: Yes (Life-Threatening, Hospitalization, Other)
  Sender: ALKEM
  Company Number: EU-ALKEM LABORATORIES LIMITED-DE-ALKEM-2022-14292

PATIENT
  Age: 25 Year
  Sex: Female
  Weight: 58 kg

DRUGS (30)
  1. IBUPROFEN [Suspect]
     Active Substance: IBUPROFEN
     Indication: Product used for unknown indication
     Dosage: UNK
     Route: 065
  2. OCREVUS [Suspect]
     Active Substance: OCRELIZUMAB
     Indication: Relapsing multiple sclerosis
     Dosage: 300 MILLIGRAM, ONCE IN 2 WEEKS
     Route: 042
     Dates: start: 20190514, end: 20190528
  3. OCREVUS [Suspect]
     Active Substance: OCRELIZUMAB
     Dosage: 600 MILLIGRAM (EVERY 6 MONTHS)
     Route: 042
     Dates: start: 20191202
  4. Amoxi Clavulan Puren [Concomitant]
     Indication: Bacterial infection
     Dosage: UNK (EVERY 2 DAY)
     Route: 048
     Dates: start: 20240306, end: 20240312
  5. Amoxi Clavulan Puren [Concomitant]
     Indication: C-reactive protein
  6. CLINDAMYCIN HYDROCHLORIDE [Concomitant]
     Active Substance: CLINDAMYCIN HYDROCHLORIDE
     Indication: Bacterial infection
     Dosage: 600 MILLIGRAM (EVERY 2 DAY)
     Route: 048
     Dates: start: 20240321, end: 20240326
  7. CHOLECALCIFEROL [Concomitant]
     Active Substance: CHOLECALCIFEROL
     Indication: Vitamin D deficiency
     Dosage: 20000 INTERNATIONAL UNIT, ONCE WEEKLY
     Route: 048
     Dates: start: 20200715
  8. DOXYCYCLINE [Concomitant]
     Active Substance: DOXYCYCLINE
     Indication: Chronic sinusitis
     Dosage: 200 MILLIGRAM, BID
     Route: 048
     Dates: start: 20231012, end: 20231021
  9. DYMISTA [Concomitant]
     Active Substance: AZELASTINE HYDROCHLORIDE\FLUTICASONE PROPIONATE
     Indication: Chronic sinusitis
     Dosage: UNK, BID
     Route: 045
     Dates: start: 20240130
  10. HERBALS [Concomitant]
     Active Substance: HERBALS
     Indication: Chronic sinusitis
     Dosage: UNK
     Route: 042
  11. HERBALS [Concomitant]
     Active Substance: HERBALS
     Dosage: UNK
     Route: 048
     Dates: start: 20230515, end: 20230522
  12. Hysan [Concomitant]
     Indication: Chronic sinusitis
     Dosage: UNK
     Route: 045
  13. CIPROFLOXACIN\FLUOCINOLONE ACETONIDE [Concomitant]
     Active Substance: CIPROFLOXACIN\FLUOCINOLONE ACETONIDE
     Indication: Otitis media
     Dosage: UNK, QD
     Route: 065
     Dates: start: 20240806, end: 20240809
  14. DESLORATADINE [Concomitant]
     Active Substance: DESLORATADINE
     Indication: Chronic sinusitis
     Dosage: UNK
     Route: 048
     Dates: start: 20231012, end: 20231123
  15. Momenta [Concomitant]
     Indication: Product used for unknown indication
     Dosage: UNK, QD
     Route: 045
     Dates: start: 20240607
  16. OFLOXACIN [Concomitant]
     Active Substance: OFLOXACIN
     Indication: Conjunctivitis
     Dosage: UNK (EVERY 2 DAY)
     Route: 065
     Dates: start: 20240405, end: 20240412
  17. Omni Biotic Ab 10 [Concomitant]
     Indication: Prophylaxis
     Dosage: UNK
     Route: 048
     Dates: start: 20240321, end: 20240326
  18. XYLOMETAZOLINE HYDROCHLORIDE [Concomitant]
     Active Substance: XYLOMETAZOLINE HYDROCHLORIDE
     Indication: Chronic sinusitis
     Dosage: UNK
     Route: 045
  19. XYLOMETAZOLINE HYDROCHLORIDE [Concomitant]
     Active Substance: XYLOMETAZOLINE HYDROCHLORIDE
     Dosage: UNK
     Route: 065
     Dates: start: 20240513, end: 20240520
  20. PANTOPRAZOLE SODIUM [Concomitant]
     Active Substance: PANTOPRAZOLE SODIUM
     Indication: Product used for unknown indication
     Dosage: UNK, QD
     Route: 048
     Dates: start: 20240820, end: 20240829
  21. PFIZER-BIONTECH COVID-19 VACCINE [Concomitant]
     Active Substance: TOZINAMERAN
     Indication: COVID-19 prophylaxis
     Dosage: 30 MICROGRAM, QD (EVERY 1 DAY)
     Route: 030
     Dates: start: 20210408, end: 20210408
  22. PFIZER-BIONTECH COVID-19 VACCINE [Concomitant]
     Active Substance: TOZINAMERAN
     Dosage: 30 MICROGRAM, QD (EVERY 1 DAY)
     Route: 030
     Dates: start: 20210519, end: 20210519
  23. PFIZER-BIONTECH COVID-19 VACCINE [Concomitant]
     Active Substance: TOZINAMERAN
     Dosage: 30 MICROGRAM, QD (EVERY 1 DAY)
     Route: 030
     Dates: start: 20211201, end: 20211201
  24. PREDNISOLONE [Concomitant]
     Active Substance: PREDNISOLONE
     Indication: Otitis media
     Dosage: 20 MILLIGRAM, QD
     Route: 048
     Dates: start: 20240820, end: 20240826
  25. PREDNISOLONE [Concomitant]
     Active Substance: PREDNISOLONE
     Indication: Nasal congestion
     Dosage: 10 MILLIGRAM, QD
     Route: 048
     Dates: start: 20240827, end: 20240829
  26. PREDNISOLONE [Concomitant]
     Active Substance: PREDNISOLONE
     Indication: Chronic sinusitis
     Dosage: UNK
     Route: 048
     Dates: start: 20240130, end: 20240208
  27. Rhinivict Nasal [Concomitant]
     Indication: Bacterial infection
     Dosage: 0.05 MILLIGRAM
     Route: 045
     Dates: start: 20240321, end: 20240326
  28. DIETARY SUPPLEMENT\HERBALS [Concomitant]
     Active Substance: DIETARY SUPPLEMENT\HERBALS
     Indication: Chronic sinusitis
     Dosage: UNK
     Route: 048
     Dates: start: 20231230, end: 20240108
  29. DIETARY SUPPLEMENT\HERBALS [Concomitant]
     Active Substance: DIETARY SUPPLEMENT\HERBALS
     Indication: Headache
     Dosage: UNK
     Route: 065
     Dates: start: 20240513, end: 20240520
  30. DIETARY SUPPLEMENT\HERBALS [Concomitant]
     Active Substance: DIETARY SUPPLEMENT\HERBALS
     Indication: Ear pain

REACTIONS (3)
  - Neutropenia [Recovered/Resolved]
  - Cystitis noninfective [Recovered/Resolved]
  - Chronic sinusitis [Not Recovered/Not Resolved]

NARRATIVE: CASE EVENT DATE: 20221101
